FAERS Safety Report 7235840-7 (Version None)
Quarter: 2011Q1

REPORT INFORMATION
  Report Type: 
  Country: None (occurrence: None)
  Receive Date: 20110120
  Receipt Date: 20110111
  Transmission Date: 20110831
  Serious: Yes (Hospitalization)
  Sender: FDA-Public Use
  Company Number: US-ROCHE-749987

PATIENT
  Sex: Male
  Weight: 86.2 kg

DRUGS (8)
  1. SPIRONOLACTONE [Concomitant]
  2. RIBAVARIN [Suspect]
     Indication: HEPATITIS C
     Dosage: DIVIDED DOSES
     Route: 048
     Dates: start: 20101205
  3. PEGASYS [Suspect]
     Indication: HEPATITIS C
     Route: 058
     Dates: start: 20101205
  4. LEVETIRACETAM [Concomitant]
  5. OMEPRAZOLE [Concomitant]
  6. LASIX [Concomitant]
  7. PROPRANOLOL [Concomitant]
  8. TRAZODONE [Concomitant]

REACTIONS (6)
  - HYPERAMMONAEMIA [None]
  - DYSKINESIA [None]
  - TREMOR [None]
  - CONFUSIONAL STATE [None]
  - EYE IRRITATION [None]
  - INSOMNIA [None]
